FAERS Safety Report 8905265 (Version 1)
Quarter: 2012Q4

REPORT INFORMATION
  Report Type: 
  Country: CA (occurrence: CA)
  Receive Date: 20121111
  Receipt Date: 20121111
  Transmission Date: 20130627
  Serious: Yes (Hospitalization, Other)
  Sender: FDA-Public Use
  Company Number: PHHO2005CA14292

PATIENT
  Sex: Female

DRUGS (13)
  1. SANDOSTATIN LAR (PATIENT BASIS) [Suspect]
     Indication: NEUROENDOCRINE CARCINOMA
  2. SANDOSTATIN LAR (PATIENT BASIS) [Suspect]
     Dosage: 20mg, every 4 weeks
     Dates: start: 20060117, end: 20061024
  3. SANDOSTATIN (OCTREOTIDE ACETATE) [Suspect]
     Indication: NEUROENDOCRINE CARCINOMA
     Route: 058
  4. ATIVAN [Concomitant]
  5. PANTOLOC [Concomitant]
  6. SYNTHROID [Concomitant]
  7. EPREX [Concomitant]
  8. IRON [Concomitant]
  9. STREPTOZOCIN [Concomitant]
     Dates: start: 20060109
  10. CHEMOTHERAPEUTICS,OTHER [Concomitant]
     Dates: start: 20060109
  11. CHEMOTHERAPEUTICS,OTHER [Concomitant]
     Dates: start: 200604
  12. CHEMOTHERAPEUTICS,OTHER [Concomitant]
     Dates: start: 20060515
  13. SANDOSTATIN [Concomitant]

REACTIONS (27)
  - White blood cell count decreased [Unknown]
  - Pallor [Unknown]
  - Fatigue [Unknown]
  - Asthenia [Unknown]
  - Cardiac failure [Unknown]
  - Oedema peripheral [Unknown]
  - Haemoglobin decreased [Unknown]
  - Weight decreased [Unknown]
  - Cardiac disorder [Unknown]
  - Hyperglycaemia [Unknown]
  - Pulmonary oedema [Recovering/Resolving]
  - Cough [Recovering/Resolving]
  - Gastrooesophageal reflux disease [Unknown]
  - Headache [Unknown]
  - Cyanosis [Unknown]
  - Nausea [Unknown]
  - Sensation of heaviness [Unknown]
  - Upper respiratory tract infection [Unknown]
  - Hypotension [Unknown]
  - Myalgia [Unknown]
  - Migraine [Unknown]
  - Abdominal distension [Unknown]
  - Dyspepsia [Unknown]
  - Vomiting [Unknown]
  - Drug ineffective [Unknown]
  - Tachycardia [Unknown]
  - Gastrointestinal disorder [Unknown]
